FAERS Safety Report 7754201-5 (Version None)
Quarter: 2011Q3

REPORT INFORMATION
  Report Type: 
  Country: None (occurrence: None)
  Receive Date: 20110915
  Receipt Date: 20110805
  Transmission Date: 20111222
  Serious: Yes (Death, Hospitalization)
  Sender: FDA-Public Use
  Company Number: PHHY2011JP68784

PATIENT
  Age: 87 Year
  Sex: Female
  Weight: 71 kg

DRUGS (3)
  1. DICLOFENAC SODIUM [Suspect]
     Indication: PAIN
     Dosage: 50 MG, ONCE DAILY PRN WHEN THE PAIN WAS INTENSE.
     Route: 054
  2. VOLTAREN [Suspect]
     Indication: PAIN
     Dosage: 75 MG, UNK
     Route: 048
     Dates: start: 20000501
  3. PREDNISOLONE [Concomitant]
     Indication: RHEUMATOID ARTHRITIS
     Dosage: 15 MG/ DAY
     Route: 048
     Dates: start: 19980101

REACTIONS (21)
  - C-REACTIVE PROTEIN INCREASED [None]
  - ANAEMIA [None]
  - BLOOD PRESSURE DIASTOLIC DECREASED [None]
  - MELAENA [None]
  - MULTI-ORGAN FAILURE [None]
  - DISSEMINATED INTRAVASCULAR COAGULATION [None]
  - BLOOD ALKALINE PHOSPHATASE INCREASED [None]
  - APOPTOSIS [None]
  - GASTROINTESTINAL PERFORATION [None]
  - HAEMOGLOBIN DECREASED [None]
  - BLOOD ALBUMIN DECREASED [None]
  - AMYLOIDOSIS [None]
  - ABDOMINAL DISTENSION [None]
  - HYPOPROTEINAEMIA [None]
  - BLOOD LACTATE DEHYDROGENASE INCREASED [None]
  - CYTOMEGALOVIRUS INFECTION [None]
  - HAEMATOCRIT DECREASED [None]
  - SEPTIC SHOCK [None]
  - COMPUTERISED TOMOGRAM ABDOMEN ABNORMAL [None]
  - INFECTIOUS PERITONITIS [None]
  - FAECES DISCOLOURED [None]
